FAERS Safety Report 16847160 (Version 2)
Quarter: 2019Q4

REPORT INFORMATION
  Report Type: Spontaneous
  Country: US (occurrence: US)
  Receive Date: 20190924
  Receipt Date: 20191001
  Transmission Date: 20200122
  Serious: Yes (Other)
  Sender: FDA-Public Use
  Company Number: US-PFIZER INC-2019399143

PATIENT
  Age: 63 Year
  Sex: Female

DRUGS (1)
  1. ROBITUSSIN MAXIMUM STRENGTH NIGHTTIME COUGH DM [Suspect]
     Active Substance: DEXTROMETHORPHAN HYDROBROMIDE\DOXYLAMINE SUCCINATE
     Dosage: UNK

REACTIONS (5)
  - Weight increased [Unknown]
  - Intervertebral disc protrusion [Unknown]
  - Fat tissue increased [Unknown]
  - Alcohol test positive [Unknown]
  - Multiple fractures [Unknown]

NARRATIVE: CASE EVENT DATE: 201812
